FAERS Safety Report 8268381-9 (Version None)
Quarter: 2012Q1

REPORT INFORMATION
  Report Type: 
  Country: None (occurrence: None)
  Receive Date: 20120327
  Receipt Date: 20090915
  Transmission Date: 20120608
  Serious: Yes (Other)
  Sender: FDA-Public Use
  Company Number: PHEH2009US11093

PATIENT
  Age: 82 Year
  Sex: Female
  Weight: 52.6173 kg

DRUGS (1)
  1. GLEEVEC [Suspect]
     Indication: GASTROINTESTINAL CARCINOMA
     Dosage: 200 MG, QD, ORAL
     Route: 048
     Dates: start: 20090302

REACTIONS (2)
  - ARTHRITIS [None]
  - BACK PAIN [None]
